FAERS Safety Report 6569270-8 (Version None)
Quarter: 2010Q1

REPORT INFORMATION
  Report Type: 
  Country: None (occurrence: None)
  Receive Date: 20100201
  Receipt Date: 20100201
  Transmission Date: 20100710
  Serious: Yes (Other)
  Sender: FDA-Public Use
  Company Number: None

PATIENT
  Age: 49 Year
  Sex: Female

DRUGS (1)
  1. MIRENA [Suspect]

REACTIONS (4)
  - DEVICE BREAKAGE [None]
  - PRODUCT QUALITY ISSUE [None]
  - URINARY TRACT DISORDER [None]
  - UTERINE PAIN [None]
